FAERS Safety Report 8181545-8 (Version None)
Quarter: 2012Q1

REPORT INFORMATION
  Report Type: 
  Country: None (occurrence: None)
  Receive Date: 20120126
  Receipt Date: 20111129
  Transmission Date: 20120608
  Serious: No
  Sender: FDA-Public Use
  Company Number: PHEH2011US010571

PATIENT
  Sex: Male

DRUGS (5)
  1. CARBATROL [Concomitant]
  2. ARANESP [Concomitant]
  3. AFINITOR [Suspect]
     Indication: ASTROCYTOMA
     Dosage: 7.5 MG, UNK, ORAL
     Route: 048
     Dates: start: 20110512
  4. IRON (IRON) [Concomitant]
  5. SYNTHROID [Concomitant]

REACTIONS (1)
  - DRUG LEVEL BELOW THERAPEUTIC [None]
